FAERS Safety Report 20913312 (Version 4)
Quarter: 2022Q3

REPORT INFORMATION
  Report Type: Report from Study
  Country: CN (occurrence: None)
  Receive Date: 20220603
  Receipt Date: 20220728
  Transmission Date: 20221026
  Serious: Yes (Hospitalization)
  Sender: FDA-Public Use
  Company Number: 2022A206501

PATIENT
  Age: 23657 Day
  Sex: Male
  Weight: 62 kg

DRUGS (32)
  1. DURVALUMAB [Suspect]
     Active Substance: DURVALUMAB
     Indication: Transitional cell carcinoma
     Route: 042
     Dates: start: 20220623, end: 20220623
  2. DURVALUMAB [Suspect]
     Active Substance: DURVALUMAB
     Indication: Transitional cell carcinoma
     Route: 042
     Dates: start: 20220107, end: 20220107
  3. DURVALUMAB [Suspect]
     Active Substance: DURVALUMAB
     Indication: Transitional cell carcinoma
     Route: 042
     Dates: start: 20220214, end: 20220214
  4. DURVALUMAB [Suspect]
     Active Substance: DURVALUMAB
     Indication: Transitional cell carcinoma
     Route: 042
     Dates: start: 20220316, end: 20220316
  5. DURVALUMAB [Suspect]
     Active Substance: DURVALUMAB
     Indication: Transitional cell carcinoma
     Route: 042
     Dates: start: 20220510, end: 20220510
  6. GEMCITABINE [Suspect]
     Active Substance: GEMCITABINE
     Indication: Transitional cell carcinoma
     Route: 042
  7. GEMCITABINE [Suspect]
     Active Substance: GEMCITABINE
     Indication: Transitional cell carcinoma
     Route: 042
  8. GEMCITABINE [Suspect]
     Active Substance: GEMCITABINE
     Indication: Transitional cell carcinoma
     Route: 042
  9. GEMCITABINE [Suspect]
     Active Substance: GEMCITABINE
     Indication: Transitional cell carcinoma
     Route: 042
     Dates: start: 20220107, end: 20220107
  10. GEMCITABINE [Suspect]
     Active Substance: GEMCITABINE
     Indication: Transitional cell carcinoma
     Route: 042
     Dates: start: 20220114, end: 20220114
  11. GEMCITABINE [Suspect]
     Active Substance: GEMCITABINE
     Indication: Transitional cell carcinoma
     Route: 042
     Dates: start: 20220214, end: 20220214
  12. GEMCITABINE [Suspect]
     Active Substance: GEMCITABINE
     Indication: Transitional cell carcinoma
     Route: 042
     Dates: start: 20220225, end: 20220225
  13. GEMCITABINE [Suspect]
     Active Substance: GEMCITABINE
     Indication: Transitional cell carcinoma
     Route: 042
     Dates: start: 20220316, end: 20220316
  14. GEMCITABINE [Suspect]
     Active Substance: GEMCITABINE
     Indication: Transitional cell carcinoma
     Route: 042
     Dates: start: 20220510, end: 20220510
  15. CARBOPLATIN [Suspect]
     Active Substance: CARBOPLATIN
     Indication: Transitional cell carcinoma
     Dosage: AUC
     Route: 042
  16. CARBOPLATIN [Suspect]
     Active Substance: CARBOPLATIN
     Indication: Transitional cell carcinoma
     Dosage: AUC
     Route: 042
  17. CARBOPLATIN [Suspect]
     Active Substance: CARBOPLATIN
     Indication: Transitional cell carcinoma
     Dosage: 5.0 AUC
     Route: 042
     Dates: start: 20220107, end: 20220107
  18. CARBOPLATIN [Suspect]
     Active Substance: CARBOPLATIN
     Indication: Transitional cell carcinoma
     Dosage: 5.0 AUC
     Route: 042
     Dates: start: 20220214, end: 20220214
  19. CARBOPLATIN [Suspect]
     Active Substance: CARBOPLATIN
     Indication: Transitional cell carcinoma
     Dosage: 5.0 AUC
     Route: 042
     Dates: start: 20220316, end: 20220316
  20. CARBOPLATIN [Suspect]
     Active Substance: CARBOPLATIN
     Indication: Transitional cell carcinoma
     Dosage: 4.0 AUC
     Route: 042
     Dates: start: 20220510, end: 20220510
  21. RECOMBINANT HUMAN GRANULOCYTE COLONY-STIMULATING FACTOR INJECTION [Concomitant]
     Indication: White blood cell count decreased
     Dosage: 125UG/INHAL DAILY
     Route: 058
     Dates: start: 20220418, end: 20220418
  22. RECOMBINANT HUMAN GRANULOCYTE COLONY-STIMULATING FACTOR INJECTION [Concomitant]
     Indication: Myelosuppression
     Dosage: 125UG/INHAL DAILY
     Route: 058
     Dates: start: 20220418, end: 20220418
  23. ASCORBIC ACID [Concomitant]
     Active Substance: ASCORBIC ACID
     Indication: Vitamin supplementation
     Route: 042
     Dates: start: 20220510, end: 20220510
  24. ASCORBIC ACID [Concomitant]
     Active Substance: ASCORBIC ACID
     Indication: Vitamin supplementation
     Route: 042
     Dates: start: 20220510, end: 20220510
  25. APREPITANT [Concomitant]
     Active Substance: APREPITANT
     Indication: Prophylaxis of nausea and vomiting
     Route: 048
     Dates: start: 20220510, end: 20220510
  26. PALONOSETRON HYDROCHLORIDE [Concomitant]
     Active Substance: PALONOSETRON HYDROCHLORIDE
     Indication: Prophylaxis of nausea and vomiting
     Route: 042
     Dates: start: 20220510, end: 20220510
  27. AMOXICILLIN TRIHYDRATE/CLARITHROMYCIN/RABEPRAZOLE SODIUM [Concomitant]
     Indication: Protein total
     Route: 042
     Dates: start: 20220510, end: 20220510
  28. RECOMBINANT HUMANTHROMBOPOIETIN INJECTION [Concomitant]
     Indication: Myelosuppression
     Dosage: 15000.00 U DAILY
     Route: 058
     Dates: start: 20220418, end: 20220418
  29. RECOMBINANT HUMANTHROMBOPOIETIN INJECTION [Concomitant]
     Indication: Platelet count decreased
     Dosage: 15000.00 U DAILY
     Route: 058
     Dates: start: 20220418, end: 20220418
  30. RECOMBINANT HUMANTHROMBOPOIETIN INJECTION [Concomitant]
     Indication: Myelosuppression
     Route: 058
     Dates: start: 20220516, end: 20220521
  31. RECOMBINANT HUMANTHROMBOPOIETIN INJECTION [Concomitant]
     Indication: Platelet count decreased
     Route: 058
     Dates: start: 20220516, end: 20220521
  32. IRON POLYSACCHARIDE COMPLEX CAPSULES [Concomitant]
     Indication: Anaemia
     Route: 048
     Dates: start: 20220219

REACTIONS (1)
  - Platelet count decreased [Recovered/Resolved]

NARRATIVE: CASE EVENT DATE: 20220516
